FAERS Safety Report 21504171 (Version 2)
Quarter: 2022Q4

REPORT INFORMATION
  Report Type: Spontaneous
  Country: JP (occurrence: JP)
  Receive Date: 20221025
  Receipt Date: 20221119
  Transmission Date: 20230113
  Serious: Yes (Hospitalization, Other)
  Sender: FDA-Public Use
  Company Number: JP-TEVA-2022-JP-2819397

PATIENT
  Age: 70 Year
  Sex: Female

DRUGS (9)
  1. PREDNISOLONE [Suspect]
     Active Substance: PREDNISOLONE
     Indication: Arthritis reactive
     Dosage: 20 MILLIGRAM DAILY;
     Route: 065
     Dates: start: 2020
  2. PREDNISOLONE [Suspect]
     Active Substance: PREDNISOLONE
     Dosage: 2.5 MILLIGRAM DAILY;
     Route: 065
     Dates: start: 2020
  3. PREDNISOLONE [Suspect]
     Active Substance: PREDNISOLONE
     Dosage: 5 MILLIGRAM DAILY;
     Route: 065
     Dates: start: 2020
  4. PREDNISOLONE [Suspect]
     Active Substance: PREDNISOLONE
     Dosage: 4 MILLIGRAM DAILY;
     Route: 065
     Dates: start: 2020
  5. BCG VACCINE [Suspect]
     Active Substance: BCG VACCINE
     Indication: Transitional cell carcinoma
     Dosage: 320 MILLIGRAM DAILY; INTRAVESICAL INFUSION 80MG 4TIMES A DAY
     Route: 050
     Dates: start: 202008
  6. BCG VACCINE [Suspect]
     Active Substance: BCG VACCINE
     Dosage: INTRAVESICAL INFUSION
     Route: 050
     Dates: start: 2020
  7. METHOTREXATE [Suspect]
     Active Substance: METHOTREXATE
     Indication: Arthritis reactive
     Route: 065
     Dates: start: 202011
  8. LOXOPROFEN [Concomitant]
     Active Substance: LOXOPROFEN
     Indication: Arthritis reactive
     Dosage: 180 MILLIGRAM DAILY;
     Route: 065
     Dates: start: 2020
  9. MINOCYCLINE [Concomitant]
     Active Substance: MINOCYCLINE HYDROCHLORIDE
     Indication: Arthritis reactive
     Dosage: 200 MILLIGRAM DAILY;
     Route: 065
     Dates: start: 2020

REACTIONS (5)
  - Arthritis reactive [Recovering/Resolving]
  - Conjunctivitis [Recovering/Resolving]
  - Dysuria [Recovering/Resolving]
  - Pneumonia [Recovering/Resolving]
  - Drug ineffective [Unknown]

NARRATIVE: CASE EVENT DATE: 20200101
